FAERS Safety Report 8791260 (Version 1)
Quarter: 2012Q4

REPORT INFORMATION
  Report Type: Spontaneous
  Country: CO (occurrence: None)
  Receive Date: 20120911
  Receipt Date: 20120911
  Transmission Date: 20130627
  Serious: Yes (Hospitalization)
  Sender: FDA-Public Use
  Company Number: DSU-2012-07071

PATIENT
  Age: 73 Year
  Sex: Female

DRUGS (4)
  1. OLMETEC [Suspect]
     Route: 048
     Dates: start: 2008
  2. LYRICA [Suspect]
     Route: 048
     Dates: start: 2010
  3. PREDNISOLONE (PREDNISOLONE)(PREDNISOLONE) [Concomitant]
  4. AZATHIOPRINE (AZATHIOPRINE) (AZATHIOPRINE) [Concomitant]

REACTIONS (2)
  - Pulmonary fibrosis [None]
  - Blood pressure decreased [None]
